FAERS Safety Report 10458046 (Version 1)
Quarter: 2014Q3

REPORT INFORMATION
  Report Type: Spontaneous
  Country: DE (occurrence: DE)
  Receive Date: 20140916
  Receipt Date: 20140916
  Transmission Date: 20150326
  Serious: Yes (Death, Other)
  Sender: FDA-Public Use
  Company Number: PHHY2014DE117036

PATIENT
  Age: 48 Year
  Sex: Female

DRUGS (6)
  1. TRANXILIUM [Suspect]
     Active Substance: CLORAZEPATE DIPOTASSIUM
  2. ETOMIDATE. [Suspect]
     Active Substance: ETOMIDATE
  3. DOLANTINA [Suspect]
     Active Substance: MEPERIDINE HYDROCHLORIDE
  4. METOPROLOL [Suspect]
     Active Substance: METOPROLOL
  5. VOMEX A [Suspect]
     Active Substance: DIMENHYDRINATE
  6. ATOSIL [Suspect]
     Active Substance: PROMETHAZINE HYDROCHLORIDE

REACTIONS (13)
  - Wheezing [Fatal]
  - Completed suicide [Fatal]
  - Fatigue [Fatal]
  - Congestive cardiomyopathy [Unknown]
  - Loss of consciousness [None]
  - Dizziness [Fatal]
  - Cardiogenic shock [Fatal]
  - Angina pectoris [None]
  - Toxicity to various agents [Fatal]
  - Pain [Fatal]
  - Hypopnoea [None]
  - Brain oedema [None]
  - Pulmonary oedema [None]
